FAERS Safety Report 18213682 (Version 1)
Quarter: 2020Q3

REPORT INFORMATION
  Report Type: Spontaneous
  Country: AF (occurrence: AF)
  Receive Date: 20200831
  Receipt Date: 20200831
  Transmission Date: 20201103
  Serious: No
  Sender: FDA-Public Use
  Company Number: None

PATIENT
  Age: 54 Year
  Sex: Female
  Weight: 61.23 kg

DRUGS (12)
  1. VITAMIN B?6 [Concomitant]
     Active Substance: PYRIDOXINE
  2. GABAPENTIN. [Concomitant]
     Active Substance: GABAPENTIN
  3. BENADRYL ALLERG [Concomitant]
  4. VITAMIN C [Concomitant]
     Active Substance: ASCORBIC ACID
  5. VITAMIN B12 [Concomitant]
     Active Substance: CYANOCOBALAMIN
  6. ERGOCALCIFEROL ORAL 400 UNIT [Concomitant]
  7. CAPECITABINE. [Suspect]
     Active Substance: CAPECITABINE
     Indication: COLON CANCER
     Route: 048
     Dates: start: 20200212, end: 20200831
  8. LONSURF 15 MG TABLET 40 CT [Concomitant]
  9. CYANOCOBALAMIN. [Concomitant]
     Active Substance: CYANOCOBALAMIN
  10. LOMOTIL [Concomitant]
     Active Substance: ATROPINE SULFATE\DIPHENOXYLATE HYDROCHLORIDE
  11. AVASTIN [Concomitant]
     Active Substance: BEVACIZUMAB
  12. MULTIVITAMINS ORAL TABLET [Concomitant]

REACTIONS (1)
  - Disease progression [None]

NARRATIVE: CASE EVENT DATE: 20200831
